FAERS Safety Report 15762416 (Version 2)
Quarter: 2019Q1

REPORT INFORMATION
  Report Type: Report from Study
  Country: CA (occurrence: CA)
  Receive Date: 20181226
  Receipt Date: 20190219
  Transmission Date: 20190417
  Serious: Yes (Other)
  Sender: FDA-Public Use
  Company Number: CA-JNJFOC-20181205634

PATIENT
  Age: 73 Year
  Sex: Female
  Weight: 52.16 kg

DRUGS (2)
  1. STELARA [Suspect]
     Active Substance: USTEKINUMAB
     Indication: PSORIASIS
     Dosage: STRENGTH = 45 MG
     Route: 058
     Dates: start: 20170908
  2. STELARA [Suspect]
     Active Substance: USTEKINUMAB
     Indication: PSORIASIS
     Route: 058
     Dates: end: 20181018

REACTIONS (9)
  - Anaphylactic reaction [Unknown]
  - Wound infection [Not Recovered/Not Resolved]
  - Eye infection [Recovering/Resolving]
  - Product use issue [Unknown]
  - Skin laceration [Unknown]
  - Cystitis [Unknown]
  - Fall [Unknown]
  - Off label use [Unknown]
  - Drug ineffective [Unknown]

NARRATIVE: CASE EVENT DATE: 201812
